FAERS Safety Report 21701493 (Version 1)
Quarter: 2022Q4

REPORT INFORMATION
  Report Type: Spontaneous
  Country: US (occurrence: US)
  Receive Date: 20221208
  Receipt Date: 20221208
  Transmission Date: 20230112
  Serious: No
  Sender: FDA-Public Use
  Company Number: US-TEVA-2022-US-2829440

PATIENT
  Age: 72 Year
  Sex: Female

DRUGS (1)
  1. IVERMECTIN [Suspect]
     Active Substance: IVERMECTIN
     Indication: Rosacea
     Dosage: ONCE A DAY IN THE MORNING
     Route: 061
     Dates: end: 2022

REACTIONS (8)
  - Burning sensation [Recovered/Resolved]
  - Dry skin [Recovered/Resolved]
  - Pruritus [Recovered/Resolved]
  - Facial pain [Recovered/Resolved]
  - Skin tightness [Recovered/Resolved]
  - Scratch [Recovered/Resolved]
  - Skin burning sensation [Recovered/Resolved]
  - Product formulation issue [Unknown]

NARRATIVE: CASE EVENT DATE: 20220101
